FAERS Safety Report 14789163 (Version 3)
Quarter: 2018Q2

REPORT INFORMATION
  Report Type: Report from Study
  Country: PK (occurrence: PK)
  Receive Date: 20180423
  Receipt Date: 20180528
  Transmission Date: 20180711
  Serious: Yes (Death, Hospitalization, Other)
  Sender: FDA-Public Use
  Company Number: PHHY2018PK070512

PATIENT
  Sex: Female
  Weight: 63 kg

DRUGS (1)
  1. TASIGNA [Suspect]
     Active Substance: NILOTINIB
     Indication: CHRONIC MYELOID LEUKAEMIA
     Dosage: 600 MG, QD (2 IN MORNING AND 1 IN EVENING)
     Route: 048
     Dates: start: 20140715, end: 20180303

REACTIONS (6)
  - Hyperhidrosis [Unknown]
  - Haemoglobin decreased [Unknown]
  - Paralysis [Fatal]
  - Loss of consciousness [Unknown]
  - Syncope [Unknown]
  - Splenomegaly [Unknown]
